FAERS Safety Report 11268032 (Version 1)
Quarter: 2015Q3

REPORT INFORMATION
  Report Type: Spontaneous
  Country: DE (occurrence: DE)
  Receive Date: 20150713
  Receipt Date: 20150713
  Transmission Date: 20151125
  Serious: Yes (Other)
  Sender: FDA-Public Use
  Company Number: DE-BRISTOL-MYERS SQUIBB COMPANY-BMS-2015-044456

PATIENT
  Age: 84 Year
  Sex: Female

DRUGS (2)
  1. LITALIR [Suspect]
     Active Substance: HYDROXYUREA
     Indication: MYELOPROLIFERATIVE DISORDER
     Dosage: 11 TAB, QWK
     Route: 065
     Dates: start: 2005
  2. NAVELBINE [Concomitant]
     Active Substance: VINORELBINE TARTRATE
     Indication: PRODUCT USED FOR UNKNOWN INDICATION
     Dosage: 30 MG, UNK
     Route: 065
     Dates: start: 20150515

REACTIONS (7)
  - Haemoglobin decreased [Unknown]
  - White blood cell count decreased [Unknown]
  - Off label use [Unknown]
  - Platelet count decreased [Unknown]
  - Deep vein thrombosis [Unknown]
  - Malignant neoplasm progression [Unknown]
  - Cerebrovascular accident [Unknown]

NARRATIVE: CASE EVENT DATE: 201505
